FAERS Safety Report 13035981 (Version 1)
Quarter: 2016Q4

REPORT INFORMATION
  Report Type: Spontaneous
  Country: FR (occurrence: FR)
  Receive Date: 20161216
  Receipt Date: 20161216
  Transmission Date: 20170207
  Serious: Yes (Death, Other)
  Sender: FDA-Public Use
  Company Number: FR-EMCURE PHARMS-2016HTG00301

PATIENT
  Age: 65 Year
  Sex: Female

DRUGS (4)
  1. ETOPOSIDE. [Suspect]
     Active Substance: ETOPOSIDE
     Indication: TRANSPLANT
     Dosage: UNK
     Route: 042
     Dates: start: 20160909, end: 20160914
  2. BICNU [Suspect]
     Active Substance: CARMUSTINE
     Indication: TRANSPLANT
     Dosage: UNK
     Route: 042
     Dates: start: 20160909, end: 20160914
  3. ARACYTINE [Suspect]
     Active Substance: CYTARABINE
     Indication: TRANSPLANT
     Dosage: UNK
     Route: 042
     Dates: start: 20160909, end: 20160914
  4. MELPHALAN [Suspect]
     Active Substance: MELPHALAN
     Indication: TRANSPLANT
     Dosage: UNK
     Route: 042
     Dates: start: 20160909, end: 20160914

REACTIONS (13)
  - Hepatic ischaemia [Fatal]
  - Escherichia bacteraemia [None]
  - Aplasia [Unknown]
  - Haemodynamic instability [None]
  - Hypoxia [None]
  - Pyrexia [Unknown]
  - Ischaemic gastritis [Fatal]
  - Intestinal ischaemia [Fatal]
  - Vomiting [Unknown]
  - Aspiration [Unknown]
  - Cardio-respiratory arrest [Fatal]
  - Necrotising oesophagitis [Fatal]
  - Sepsis [Unknown]

NARRATIVE: CASE EVENT DATE: 201609
